FAERS Safety Report 5062375-2 (Version None)
Quarter: 2006Q3

REPORT INFORMATION
  Report Type: 
  Country: None (occurrence: None)
  Receive Date: 20060721
  Receipt Date: 20060712
  Transmission Date: 20061208
  Serious: Yes (Hospitalization, Other)
  Sender: FDA-Public Use
  Company Number: 2006083866

PATIENT
  Sex: Male
  Weight: 95 kg

DRUGS (14)
  1. LYRICA [Suspect]
     Indication: POLYNEUROPATHY
     Dosage: 150 MG (75 MG, 2 IN 1 D), ORAL
     Route: 048
     Dates: start: 20060419, end: 20060610
  2. PLAVIX [Concomitant]
  3. OMEPRAZOLE [Concomitant]
  4. MICARDIS [Concomitant]
  5. TORSEMIDE [Concomitant]
  6. ALLOPURINOL [Concomitant]
  7. OXAZEPAM [Concomitant]
  8. IMOVANE (ZOPICLONE) [Concomitant]
  9. ACETAMINOPHEN [Concomitant]
  10. FRAXIPARINE (HEPARIN-FRACTION, CALCIUM SALT) [Concomitant]
  11. TILUR (ACEMETACIN) [Concomitant]
  12. TRAMADOL HCL [Concomitant]
  13. MAGNESIUM DIASPORAL (MAGNESIUM CITRATE) [Concomitant]
  14. MADOPAR (BENSERAZIDE HYDROCHLORIDE, LEVODOPA) [Concomitant]

REACTIONS (5)
  - DRUG TOXICITY [None]
  - DYSURIA [None]
  - SOMNOLENCE [None]
  - TREMOR [None]
  - WEIGHT INCREASED [None]
